FAERS Safety Report 9165131 (Version 6)
Quarter: 2014Q1

REPORT INFORMATION
  Report Type: Spontaneous
  Country: FR (occurrence: None)
  Receive Date: 20130228
  Receipt Date: 20140331
  Transmission Date: 20141002
  Serious: Yes (Hospitalization)
  Sender: FDA-Public Use
  Company Number: SYM-2013-00932

PATIENT
  Age: 58 Year
  Sex: Male

DRUGS (6)
  1. 5-FU [Suspect]
     Indication: COLORECTAL CANCER METASTATIC
     Route: 040
     Dates: start: 20130109, end: 20130109
  2. IRINOTECAN [Suspect]
     Indication: COLORECTAL CANCER METASTATIC
     Route: 041
     Dates: start: 20130109, end: 20130109
  3. LEUCOVORIN [Suspect]
     Indication: COLORECTAL CANCER METASTATIC
     Route: 041
     Dates: start: 20130109, end: 20130109
  4. AFLIBERCEPT [Suspect]
     Indication: COLORECTAL CANCER METASTATIC
     Route: 041
     Dates: start: 20130109, end: 20130109
  5. HEPARIN (HEPARIN) (HEPARIN) [Concomitant]
  6. MUCOLYTICS (MUCOLYTICS) [Concomitant]

REACTIONS (6)
  - Diarrhoea [None]
  - Toxicity to various agents [None]
  - Mucosal inflammation [None]
  - Dyspnoea [None]
  - Epistaxis [None]
  - Stomatitis [None]
